FAERS Safety Report 8066830 (Version 5)
Quarter: 2024Q2

REPORT INFORMATION
  Report Type: Report from Study
  Country: DE (occurrence: DE)
  Receive Date: 20110803
  Receipt Date: 20240625
  Transmission Date: 20240716
  Serious: Yes (Hospitalization, Other)
  Sender: FDA-Public Use
  Company Number: DE-JNJFOC-20110710663

PATIENT
  Age: 12 Year
  Sex: Female
  Weight: 39.8 kg

DRUGS (4)
  1. REMICADE [Suspect]
     Active Substance: INFLIXIMAB
     Indication: Crohn^s disease
     Route: 041
     Dates: start: 20100331, end: 20100415
  2. REMICADE [Suspect]
     Active Substance: INFLIXIMAB
     Route: 041
     Dates: start: 20100927, end: 20121001
  3. REMICADE [Suspect]
     Active Substance: INFLIXIMAB
     Route: 041
     Dates: start: 20121112, end: 20121112
  4. CEFUROXIME [Suspect]
     Active Substance: CEFUROXIME
     Indication: Product used for unknown indication
     Route: 065

REACTIONS (11)
  - Bacterial infection [Recovered/Resolved]
  - Haematochezia [Recovered/Resolved]
  - Abscess limb [Recovered/Resolved]
  - Constipation [Recovered/Resolved]
  - Dermatitis [Recovered/Resolved]
  - Headache [Recovered/Resolved]
  - Transaminases increased [Recovered/Resolved]
  - Iron deficiency [Recovered/Resolved]
  - Vitamin A deficiency [Recovered/Resolved]
  - Ovarian cyst [Recovered/Resolved]
  - Abdominal pain upper [Recovered/Resolved]

NARRATIVE: CASE EVENT DATE: 20110103
